FAERS Safety Report 12582939 (Version 2)
Quarter: 2016Q3

REPORT INFORMATION
  Report Type: Spontaneous
  Country: US (occurrence: US)
  Receive Date: 20160722
  Receipt Date: 20160812
  Transmission Date: 20161109
  Serious: Yes (Other)
  Sender: FDA-Public Use
  Company Number: US-BAYER-2016-138409

PATIENT
  Age: 29 Year
  Sex: Female
  Weight: 80.27 kg

DRUGS (7)
  1. MIRENA [Suspect]
     Active Substance: LEVONORGESTREL
     Indication: CONTRACEPTION
     Dosage: 20 MCG/24HR, CONT
     Route: 015
     Dates: start: 20160719
  2. MIRENA [Suspect]
     Active Substance: LEVONORGESTREL
     Indication: CONTRACEPTION
     Dosage: 20 MCG/24HR, CONT
     Route: 015
     Dates: start: 20160606, end: 20160714
  3. BETADINE [Concomitant]
     Active Substance: POVIDONE-IODINE
     Indication: INFECTION PROPHYLAXIS
     Dosage: UNK
     Dates: start: 20160606, end: 20160606
  4. CYTOTEC [Concomitant]
     Active Substance: MISOPROSTOL
     Dosage: 200 UNK, UNK
     Route: 048
     Dates: start: 20160606, end: 20160606
  5. VITAMIN D [COLECALCIFEROL] [Concomitant]
     Dosage: UNK
     Route: 048
     Dates: start: 20151021
  6. PRENATAL VITAMINS [VIT C,VIT H,MIN NOS,VIT PP,RETINOL,VIT E,VIT B [Concomitant]
     Dosage: UNK
     Route: 048
     Dates: start: 20151021
  7. BETADINE [Concomitant]
     Active Substance: POVIDONE-IODINE
     Indication: INFECTION PROPHYLAXIS
     Dosage: UNK
     Dates: start: 20160719, end: 20160719

REACTIONS (11)
  - Abdominal pain lower [None]
  - Pelvic pain [None]
  - Procedural pain [None]
  - Dyspareunia [None]
  - Pain [None]
  - Embedded device [None]
  - Procedural pain [None]
  - Menstruation irregular [None]
  - Genital haemorrhage [None]
  - Complication associated with device [None]
  - Post procedural haemorrhage [None]

NARRATIVE: CASE EVENT DATE: 2016
